FAERS Safety Report 8483082-X (Version None)
Quarter: 2012Q3

REPORT INFORMATION
  Report Type: 
  Country: None (occurrence: None)
  Receive Date: 20120702
  Receipt Date: 20120621
  Transmission Date: 20120928
  Serious: Yes (Hospitalization)
  Sender: FDA-Public Use
  Company Number: GB-ROCHE-790708

PATIENT
  Sex: Female
  Weight: 12.9 kg

DRUGS (34)
  1. ONDANSETRON [Concomitant]
     Route: 048
     Dates: start: 20110901, end: 20110907
  2. LEVOMEPROMAZINE [Concomitant]
     Route: 042
  3. MOVIPREP [Concomitant]
     Dosage: TDD: 1 SACHETS
     Dates: start: 20110901, end: 20110907
  4. MOVIPREP [Concomitant]
     Dosage: TDD: 2 SACHETS
  5. MESNA [Suspect]
     Indication: SARCOMA METASTATIC
     Dosage: FREQUENCY: DAYS 1 AND 2  DOSAGE FORM: 3600 MG/M2  LAST DOSE PRIOR TO SAE WAS TAKEN ON 31 AUG 2011
     Route: 042
  6. MESNA [Suspect]
     Dosage: FREQUENCY: OD,  DOSAGE FORM: 3600 MG/M2
     Route: 042
  7. DACTINOMYCIN [Suspect]
     Dosage: DOSAGE: 1-5 MG/M2, DAY 1, DATE OF LAST DOSE PRIOR TO SAE: 23 NOV 2011
     Route: 042
     Dates: start: 20110712
  8. VINORELBINE TARTRATE [Suspect]
     Indication: RHABDOMYOSARCOMA
     Dosage: LAST DOSE PRIOR TO SAE 08/MAY/2012
     Route: 042
     Dates: start: 20120301
  9. COTRIM [Concomitant]
     Route: 048
  10. VINCRISTINE [Suspect]
     Indication: SARCOMA METASTATIC
     Dosage: DOSAGE CUMM: 1.5 MG/M2, FREQUENCY DAYS 1,8 AND 15 OF CYCLELAST DOSEPRIOR TO SAE: 23 NOV 2011
     Route: 042
  11. DACTINOMYCIN [Suspect]
     Indication: SARCOMA METASTATIC
     Dosage: FREQUENCY: DAY 1  OF CYCLE DOSAGE: 1.5 MG/M2   LAST DOSE PRIOR TO SAE WAS TAKEN ON 30 AUG 2011
     Route: 042
  12. MORPHINE [Concomitant]
     Dosage: DRUG REPORTED AS MORPHINE SULPHATE
     Route: 048
  13. MESNA [Suspect]
     Dosage: DATE OF LAST DOSE PRIOR TO SAE: 21 SEP 2011
     Route: 042
  14. CYCLOPHOSPHAMIDE [Suspect]
     Indication: RHABDOMYOSARCOMA
     Dosage: LAST DOSE PRIOR TO SAE 06/06/2012
     Route: 048
     Dates: start: 20120301
  15. DOCUSATE [Concomitant]
  16. DOCUSATE [Concomitant]
  17. GENTAMICIN [Concomitant]
     Route: 042
     Dates: start: 20110817, end: 20110824
  18. MOVIPREP [Concomitant]
     Dosage: TDD: 2 SACHETS
  19. EMOLLIENT CREAM (UNK INGREDIENTS) [Concomitant]
     Dosage: REPORTED AS: 50 AND 50 EMOLLIENT CREAM.
     Dates: start: 20111012
  20. ACETAMINOPHEN [Concomitant]
     Route: 048
  21. ONDANSETRON [Concomitant]
     Route: 048
  22. AVASTIN [Suspect]
     Indication: SARCOMA METASTATIC
     Dosage: FREQUENCY: DAY 1, LAST DOSE PRIOR TO SAE: 21/05/2012
     Route: 042
  23. IFOSFAMIDE [Suspect]
     Indication: SARCOMA METASTATIC
     Dosage: FREQUENCY: DAYS 1 AND 2.   DOSAGE FORM:3G/M2   LAST DOSE PRIOR TO SAE WAS TAKEN ON 24 NOV 2011
     Route: 042
  24. ONDANSETRON [Concomitant]
     Route: 048
  25. FLUCONAZOLE [Concomitant]
     Route: 042
  26. LEVOMEPROMAZINE [Concomitant]
     Dates: start: 20111125, end: 20111127
  27. PIPERACILLIN AND TAZOBACTAM [Concomitant]
     Dosage: 1070 QDS
     Route: 042
     Dates: start: 20110817, end: 20110824
  28. ONDANSETRON [Concomitant]
     Dates: start: 20111125, end: 20111129
  29. NEUPOGEN [Concomitant]
     Route: 042
  30. DIHYDROCODEINE BITARTRATE INJ [Concomitant]
     Route: 048
     Dates: start: 20110928
  31. DOXORUBICIN HCL [Suspect]
     Indication: SARCOMA METASTATIC
     Dosage: FREQUENCY: DAYS 1 AND 2    DOSAGE: 30 MG/M2   LAST DOSE PRIOR TO SAE WAS TAKEN ON 31 AUG 2011
     Route: 042
  32. DACTINOMYCIN [Suspect]
     Dosage: DATE OF LAST DOSE PRIOR TO ONSET OF SAE: 11 OCT 2011
     Route: 042
  33. DOCUSATE [Concomitant]
     Route: 048
  34. NEUPOGEN [Concomitant]
     Dosage: 60 MICROMOLES
     Route: 042

REACTIONS (4)
  - CANDIDA TEST POSITIVE [None]
  - MUCOSAL INFLAMMATION [None]
  - EPISTAXIS [None]
  - FEBRILE NEUTROPENIA [None]
